FAERS Safety Report 6386232-4 (Version None)
Quarter: 2009Q4

REPORT INFORMATION
  Report Type: 
  Country: None (occurrence: None)
  Receive Date: 20091002
  Receipt Date: 20090929
  Transmission Date: 20100525
  Serious: Yes (Death, Other)
  Sender: FDA-Public Use
  Company Number: JP-ELI_LILLY_AND_COMPANY-JP200909006943

PATIENT
  Age: 47 Year
  Sex: Male

DRUGS (5)
  1. GEMZAR [Suspect]
     Indication: PANCREATIC CARCINOMA
     Dosage: 750 MG/M2, OTHER
     Route: 042
     Dates: start: 20070701
  2. GEMZAR [Suspect]
     Dosage: 350 MG/M2, OTHER
     Route: 042
  3. GEMZAR [Suspect]
     Dosage: 450 MG/M2, OTHER
     Route: 042
     Dates: start: 20071101
  4. GEMZAR [Suspect]
     Dosage: 350 MG/M2, OTHER
     Route: 042
  5. CISPLATIN [Concomitant]
     Indication: PANCREATIC CARCINOMA
     Dosage: 10 MG/M2, OTHER
     Route: 042
     Dates: start: 20071101

REACTIONS (4)
  - LYMPHANGIOSIS CARCINOMATOSA [None]
  - METASTASES TO LUNG [None]
  - NEUTROPENIA [None]
  - RESPIRATORY FAILURE [None]
